FAERS Safety Report 7459599-3 (Version None)
Quarter: 2011Q2

REPORT INFORMATION
  Report Type: 
  Country: None (occurrence: None)
  Receive Date: 20110505
  Receipt Date: 20110426
  Transmission Date: 20111010
  Serious: Yes (Death, Hospitalization)
  Sender: FDA-Public Use
  Company Number: ES-CUBIST-2011S1000295

PATIENT
  Age: 40 Year
  Sex: Male

DRUGS (3)
  1. TEICOPLANIN [Concomitant]
     Indication: DEVICE RELATED INFECTION
     Route: 065
     Dates: start: 20110318, end: 20110408
  2. LINEZOLID [Concomitant]
     Indication: DEVICE RELATED INFECTION
     Route: 065
     Dates: start: 20110408, end: 20110414
  3. CUBICIN [Suspect]
     Indication: DEVICE RELATED INFECTION
     Route: 042
     Dates: start: 20110414, end: 20110418

REACTIONS (11)
  - HEPATITIS [None]
  - PYREXIA [None]
  - HEPATOTOXICITY [None]
  - HYPOTHERMIA [None]
  - SEPSIS [None]
  - HAEMORRHAGIC DISORDER [None]
  - NEUTROPENIA [None]
  - MULTI-ORGAN FAILURE [None]
  - RENAL IMPAIRMENT [None]
  - INCORRECT DOSE ADMINISTERED [None]
  - THROMBOCYTOPENIA [None]
